FAERS Safety Report 15774091 (Version 1)
Quarter: 2018Q4

REPORT INFORMATION
  Report Type: Spontaneous
  Country: GB (occurrence: GB)
  Receive Date: 20181229
  Receipt Date: 20181229
  Transmission Date: 20190205
  Serious: Yes (Life-Threatening, Hospitalization)
  Sender: FDA-Public Use
  Company Number: GB-TEVA-2018-GB-993146

PATIENT
  Age: 63 Year
  Sex: Male
  Weight: 83.3 kg

DRUGS (15)
  1. IBRUTINIB [Concomitant]
     Active Substance: IBRUTINIB
     Indication: MANTLE CELL LYMPHOMA
     Dosage: 560 MILLIGRAM DAILY;
     Route: 048
     Dates: start: 20180911, end: 20181129
  2. INSULIN [Concomitant]
     Active Substance: INSULIN NOS
     Indication: DIABETES MELLITUS
  3. SIMVASTATIN. [Concomitant]
     Active Substance: SIMVASTATIN
  4. COTRIMOXAZOLE [Suspect]
     Active Substance: SULFAMETHOXAZOLE\TRIMETHOPRIM
     Indication: MANTLE CELL LYMPHOMA
     Dosage: 960 MILLIGRAM DAILY; ON MONDAY, WEDNESDAY AND FRIDAY
     Route: 048
     Dates: start: 20180911, end: 20180923
  5. GENTAMICIN. [Concomitant]
     Active Substance: GENTAMICIN
     Indication: SEPSIS
     Dates: start: 20180919
  6. LACTULOSE. [Concomitant]
     Active Substance: LACTULOSE
  7. ALLOPURINOL. [Suspect]
     Active Substance: ALLOPURINOL
     Indication: MANTLE CELL LYMPHOMA
     Dosage: 300 MILLIGRAM DAILY;
     Route: 048
     Dates: start: 20180911, end: 20180923
  8. RITUXIMAB. [Concomitant]
     Active Substance: RITUXIMAB
     Dates: start: 20180911
  9. NOVOMIX [Concomitant]
     Active Substance: INSULIN ASPART
  10. CLENIL MODULITE [Concomitant]
     Active Substance: BECLOMETHASONE DIPROPIONATE
  11. MEROPENEM. [Concomitant]
     Active Substance: MEROPENEM
  12. TAZOCIN [Concomitant]
     Active Substance: PIPERACILLIN SODIUM\TAZOBACTAM SODIUM
     Indication: SEPSIS
     Dates: start: 20180919
  13. LISINOPRIL. [Concomitant]
     Active Substance: LISINOPRIL
  14. SALBUTAMOL [Concomitant]
     Active Substance: ALBUTEROL
  15. VANCOMYCIN [Concomitant]
     Active Substance: VANCOMYCIN

REACTIONS (8)
  - Tachypnoea [Unknown]
  - Wheezing [Unknown]
  - Hyperpyrexia [Unknown]
  - Petechiae [Recovered/Resolved]
  - Tachycardia [Unknown]
  - Fatigue [Unknown]
  - Lower respiratory tract infection [Unknown]
  - Hypotension [Unknown]

NARRATIVE: CASE EVENT DATE: 20180920
